FAERS Safety Report 5225051-9 (Version None)
Quarter: 2007Q1

REPORT INFORMATION
  Report Type: 
  Country: None (occurrence: None)
  Receive Date: 20070131
  Receipt Date: 20070126
  Transmission Date: 20070707
  Serious: Yes (Other)
  Sender: FDA-Public Use
  Company Number: IT-GLAXOSMITHKLINE-B0456334A

PATIENT
  Age: 63 Year
  Sex: Male

DRUGS (1)
  1. AUGMENTIN '125' [Suspect]
     Indication: ABSCESS
     Route: 048
     Dates: start: 20061228, end: 20061228

REACTIONS (2)
  - LARYNGEAL OEDEMA [None]
  - RASH ERYTHEMATOUS [None]
